FAERS Safety Report 5602318-3 (Version None)
Quarter: 2008Q1

REPORT INFORMATION
  Report Type: 
  Country: None (occurrence: None)
  Receive Date: 20080125
  Receipt Date: 20080114
  Transmission Date: 20080703
  Serious: Yes (Death, Life-Threatening, Hospitalization, Other)
  Sender: FDA-Public Use
  Company Number: US-BRISTOL-MYERS SQUIBB COMPANY-14031850

PATIENT
  Age: 74 Year
  Sex: Female
  Weight: 52 kg

DRUGS (5)
  1. ERBITUX [Suspect]
     Indication: COLORECTAL CANCER METASTATIC
     Dosage: THERAPY START DATE: 14NOV07
     Dates: start: 20071114, end: 20071205
  2. AVASTIN [Suspect]
     Indication: COLORECTAL CANCER METASTATIC
     Dosage: THERPY START DATE: 14NOV07. REMOVED FROM STUDY ON 05DEC07
     Dates: start: 20071114, end: 20071128
  3. LEUCOVORIN CALCIUM [Suspect]
     Indication: COLORECTAL CANCER METASTATIC
     Dosage: THERPY START DATE: 14NOV07. REMOVED FROM STUDY ON 05DEC07
     Dates: start: 20071114, end: 20071128
  4. OXALIPLATIN [Suspect]
     Indication: COLORECTAL CANCER METASTATIC
     Dosage: THERPY START DATE: 14NOV07. REMOVED FROM STUDY ON 05DEC07
     Dates: start: 20071114, end: 20071128
  5. FLUOROURACIL [Suspect]
     Indication: COLORECTAL CANCER METASTATIC
     Dosage: 5FU CI. 1200 MG/M2 START DATE 14-NOV-2007. LAST DOSE BEFORE EVENT 29-NOV-2007.
     Route: 040
     Dates: start: 20071114, end: 20071129

REACTIONS (8)
  - ATRIAL FIBRILLATION [None]
  - GASTROINTESTINAL HAEMORRHAGE [None]
  - HYPOTENSION [None]
  - MYOCARDIAL INFARCTION [None]
  - PANCYTOPENIA [None]
  - RENAL FAILURE [None]
  - RESPIRATORY FAILURE [None]
  - SEPSIS [None]
